FAERS Safety Report 15802189 (Version 1)
Quarter: 2019Q1

REPORT INFORMATION
  Report Type: Spontaneous
  Country: CN (occurrence: CN)
  Receive Date: 20190109
  Receipt Date: 20190109
  Transmission Date: 20190417
  Serious: Yes (Hospitalization)
  Sender: FDA-Public Use
  Company Number: CN-009507513-1901CHN001583

PATIENT
  Sex: Male

DRUGS (1)
  1. NASONEX [Suspect]
     Active Substance: MOMETASONE FUROATE
     Indication: SINUSITIS
     Dosage: 1 DOSAGE FORM/SPRAY, QD (ONCE DAILY); INTRANASAL
     Route: 045
     Dates: start: 20181019, end: 20181022

REACTIONS (3)
  - Oropharyngeal discomfort [Recovering/Resolving]
  - Palpitations [Recovering/Resolving]
  - Throat tightness [Recovering/Resolving]

NARRATIVE: CASE EVENT DATE: 20181022
